FAERS Safety Report 25102089 (Version 3)
Quarter: 2025Q3

REPORT INFORMATION
  Report Type: Spontaneous
  Country: US (occurrence: US)
  Receive Date: 20250320
  Receipt Date: 20250714
  Transmission Date: 20251020
  Serious: Yes (Other)
  Sender: PFIZER
  Company Number: US-PFIZER INC-202500060025

PATIENT
  Age: 47 Year
  Sex: Male

DRUGS (2)
  1. VELSIPITY [Suspect]
     Active Substance: ETRASIMOD ARGININE
     Dates: end: 20250316
  2. HYDROXYZINE [Concomitant]
     Active Substance: HYDROXYZINE HYDROCHLORIDE
     Indication: Blood pressure abnormal

REACTIONS (4)
  - Tooth infection [Unknown]
  - Toothache [Unknown]
  - Rash [Unknown]
  - Drug ineffective [Unknown]
